FAERS Safety Report 16094423 (Version 2)
Quarter: 2019Q2

REPORT INFORMATION
  Report Type: Spontaneous
  Country: US (occurrence: US)
  Receive Date: 20190320
  Receipt Date: 20190405
  Transmission Date: 20190711
  Serious: No
  Sender: FDA-Public Use
  Company Number: US-PFIZER INC-2017397132

PATIENT
  Age: 65 Year
  Sex: Male

DRUGS (2)
  1. SOMAVERT [Suspect]
     Active Substance: PEGVISOMANT
     Dosage: 40 MG, 5 TIMES A WEEK
     Route: 058
     Dates: start: 20170508
  2. SOMAVERT [Suspect]
     Active Substance: PEGVISOMANT
     Indication: ACROMEGALY
     Dosage: 30 MG, 3 DAYS A WEEK
     Dates: start: 20170531

REACTIONS (2)
  - Product use issue [Unknown]
  - Insulin-like growth factor increased [Unknown]
